FAERS Safety Report 4824440-1 (Version None)
Quarter: 2005Q4

REPORT INFORMATION
  Report Type: 
  Country: None (occurrence: None)
  Receive Date: 20051108
  Receipt Date: 20051031
  Transmission Date: 20060501
  Serious: Yes (Death)
  Sender: FDA-Public Use
  Company Number: 163-20785-05090400

PATIENT
  Age: 62 Year
  Sex: Female

DRUGS (4)
  1. THALOMID [Suspect]
     Indication: MULTIPLE MYELOMA
     Dosage: 200 MG, DAILY, ORAL
     Route: 048
     Dates: start: 20050531, end: 20050101
  2. DOXIL [Concomitant]
  3. VINCRISTINE [Concomitant]
  4. AREDIA [Concomitant]

REACTIONS (2)
  - NERVOUS SYSTEM DISORDER [None]
  - RENAL FAILURE CHRONIC [None]
